FAERS Safety Report 6640583-4 (Version None)
Quarter: 2010Q1

REPORT INFORMATION
  Report Type: 
  Country: None (occurrence: None)
  Receive Date: 20100318
  Receipt Date: 20100311
  Transmission Date: 20100710
  Serious: Yes (Other)
  Sender: FDA-Public Use
  Company Number: DK-ASTRAZENECA-2010SE10826

PATIENT
  Sex: Male

DRUGS (3)
  1. SEROQUEL [Suspect]
     Route: 064
  2. METADON [Suspect]
     Route: 064
  3. HEROIN [Suspect]
     Route: 064

REACTIONS (2)
  - MUSCLE SPASMS [None]
  - PREMATURE LABOUR [None]
